FAERS Safety Report 4951770-5 (Version None)
Quarter: 2006Q1

REPORT INFORMATION
  Report Type: 
  Country: None (occurrence: None)
  Receive Date: 20060322
  Receipt Date: 20060322
  Transmission Date: 20060701
  Serious: Yes (Other)
  Sender: FDA-Public Use
  Company Number: None

PATIENT
  Age: 62 Year
  Sex: Female
  Weight: 66.2252 kg

DRUGS (1)
  1. TOPROL-XL [Suspect]
     Indication: HYPERTENSION
     Dosage: 200 MG DAILY PO
     Route: 048
     Dates: start: 20051006, end: 20060314

REACTIONS (2)
  - DIARRHOEA [None]
  - MUCOUS STOOLS [None]
